FAERS Safety Report 9053881 (Version 1)
Quarter: 2013Q1

REPORT INFORMATION
  Report Type: Spontaneous
  Country: US (occurrence: None)
  Receive Date: 20130201
  Receipt Date: 20130201
  Transmission Date: 20140127
  Serious: No
  Sender: FDA-Public Use
  Company Number: None

PATIENT
  Age: 82 Year
  Sex: Female
  Weight: 58.97 kg

DRUGS (1)
  1. QUETIAPINE [Suspect]
     Indication: BIPOLAR I DISORDER
     Dosage: 100 MGM H.S. DAILY P.O.
     Route: 048

REACTIONS (4)
  - Dizziness [None]
  - Palpitations [None]
  - Heart rate increased [None]
  - Heart rate irregular [None]
